FAERS Safety Report 10576202 (Version 3)
Quarter: 2015Q1

REPORT INFORMATION
  Report Type: Spontaneous
  Country: US (occurrence: US)
  Receive Date: 20141111
  Receipt Date: 20150116
  Transmission Date: 20150720
  Serious: Yes (Hospitalization, Other)
  Sender: FDA-Public Use
  Company Number: US-PFIZER INC-2014307517

PATIENT
  Age: 79 Year
  Sex: Female
  Weight: 104.31 kg

DRUGS (2)
  1. SIMBRINZA [Concomitant]
     Active Substance: BRIMONIDINE TARTRATE\BRINZOLAMIDE
     Dosage: UNK
  2. XALATAN [Suspect]
     Active Substance: LATANOPROST
     Indication: GLAUCOMA
     Dosage: 1 GTT, DAILY (ONE DROP IN EACH EYE AT NIGHT) (.005%)

REACTIONS (2)
  - Deafness unilateral [Unknown]
  - Hearing impaired [Unknown]
